FAERS Safety Report 24881557 (Version 1)
Quarter: 2025Q1

REPORT INFORMATION
  Report Type: Spontaneous
  Country: US (occurrence: US)
  Receive Date: 20250124
  Receipt Date: 20250124
  Transmission Date: 20250409
  Serious: No
  Sender: ROCHE
  Company Number: US-ROCHE-10000180485

PATIENT
  Age: 62 Year
  Sex: Female

DRUGS (11)
  1. BEVACIZUMAB [Suspect]
     Active Substance: BEVACIZUMAB
     Indication: Ovarian cancer
     Route: 065
  2. PEMETREXED [Suspect]
     Active Substance: PEMETREXED
     Indication: Ovarian cancer
     Route: 065
  3. GEMCITABINE [Suspect]
     Active Substance: GEMCITABINE
     Indication: Ovarian cancer
     Route: 065
  4. CISPLATIN [Concomitant]
     Active Substance: CISPLATIN
  5. PACLITAXEL [Concomitant]
     Active Substance: PACLITAXEL
  6. CARBOPLATIN [Concomitant]
     Active Substance: CARBOPLATIN
  7. DOXORUBICIN HYDROCHLORIDE [Concomitant]
     Active Substance: DOXORUBICIN HYDROCHLORIDE
  8. OLAPARIB [Concomitant]
     Active Substance: OLAPARIB
  9. MIRVETUXIMAB SORAVTANSINE [Concomitant]
     Active Substance: MIRVETUXIMAB SORAVTANSINE
  10. TOPOTECAN [Concomitant]
     Active Substance: TOPOTECAN HYDROCHLORIDE
  11. PACLITAXEL [Suspect]
     Active Substance: PACLITAXEL

REACTIONS (1)
  - Gene mutation [Unknown]
